FAERS Safety Report 8216124-7 (Version None)
Quarter: 2012Q1

REPORT INFORMATION
  Report Type: 
  Country: None (occurrence: None)
  Receive Date: 20120316
  Receipt Date: 20120305
  Transmission Date: 20120608
  Serious: Yes (Disabling, Other)
  Sender: FDA-Public Use
  Company Number: US-ELI_LILLY_AND_COMPANY-US201203001977

PATIENT
  Sex: Female

DRUGS (3)
  1. HUMALOG [Suspect]
     Dosage: 15 U, TID
     Route: 065
  2. LANTUS [Concomitant]
     Dosage: 25 U, EACH EVENING
     Route: 058
  3. LIPITOR [Concomitant]
     Dosage: 20 MG, EACH EVENING

REACTIONS (1)
  - CEREBROVASCULAR ACCIDENT [None]
